FAERS Safety Report 5865578-X (Version None)
Quarter: 2008Q3

REPORT INFORMATION
  Report Type: 
  Country: None (occurrence: None)
  Receive Date: 20080829
  Receipt Date: 20080813
  Transmission Date: 20090109
  Serious: No
  Sender: FDA-Public Use
  Company Number: US-ABBOTT-08P-163-0470266-00

PATIENT
  Age: 49 Year
  Sex: Male

DRUGS (4)
  1. SIMCOR [Suspect]
     Indication: BLOOD CHOLESTEROL INCREASED
     Dosage: 500/20MG (TOTAL DAILY DOSE) 500/20MG (UNTI DOSE)
     Route: 048
     Dates: start: 20080805, end: 20080808
  2. SIMCOR [Suspect]
     Indication: BLOOD TRIGLYCERIDES INCREASED
     Dosage: 251/10MG (TOTAL DAILY DOSE) HALF TABLET 250/10MG
     Route: 048
     Dates: start: 20080808
  3. UNKNOWN ACE INHIBITOR [Concomitant]
     Indication: DRUG USE FOR UNKNOWN INDICATION
     Route: 048
  4. LISINOPRIL [Concomitant]
     Indication: DRUG USE FOR UNKNOWN INDICATION
     Route: 048

REACTIONS (1)
  - BLOOD PRESSURE SYSTOLIC DECREASED [None]
